FAERS Safety Report 16280078 (Version 1)
Quarter: 2019Q2

REPORT INFORMATION
  Report Type: Spontaneous
  Country: US (occurrence: US)
  Receive Date: 20190507
  Receipt Date: 20190507
  Transmission Date: 20190711
  Serious: No
  Sender: FDA-Public Use
  Company Number: US-GLENMARK PHARMACEUTICALS-2019GMK039517

PATIENT

DRUGS (2)
  1. MOMETASONE FUROATE CREAM USP [Suspect]
     Active Substance: MOMETASONE FUROATE
     Indication: SEBORRHOEA
     Dosage: UNK
     Route: 061
  2. MOMETASONE FUROATE CREAM USP [Suspect]
     Active Substance: MOMETASONE FUROATE
     Indication: SEBORRHOEA
     Dosage: UNK, BID
     Route: 061
     Dates: start: 201901, end: 20190122

REACTIONS (4)
  - Product compounding quality issue [Unknown]
  - Drug ineffective [Unknown]
  - Product physical consistency issue [Unknown]
  - Expired product administered [Unknown]

NARRATIVE: CASE EVENT DATE: 201901
